FAERS Safety Report 25955319 (Version 1)
Quarter: 2025Q4

REPORT INFORMATION
  Report Type: Report from Study
  Country: KR (occurrence: KR)
  Receive Date: 20251024
  Receipt Date: 20251024
  Transmission Date: 20260118
  Serious: Yes (Hospitalization)
  Sender: IPSEN BIOPHARMACEUTICALS, INC.
  Company Number: KR-SERVIER-S23007262

PATIENT
  Age: 61 Year
  Sex: Male
  Weight: 85.4 kg

DRUGS (2)
  1. ONIVYDE [Suspect]
     Active Substance: IRINOTECAN HYDROCHLORIDE
     Indication: Pancreatic carcinoma
     Dosage: 90 MG/M2, EVERY 3 WEEKS
     Dates: start: 20230627
  2. CAPECITABINE [4]
     Active Substance: CAPECITABINE
     Indication: Pancreatic carcinoma
     Dosage: 1000 MG/M2

REACTIONS (1)
  - Infusion related reaction [Unknown]

NARRATIVE: CASE EVENT DATE: 20230627
